FAERS Safety Report 4589963-1 (Version None)
Quarter: 2005Q1

REPORT INFORMATION
  Report Type: 
  Country: None (occurrence: None)
  Receive Date: 20050125
  Receipt Date: 20041006
  Transmission Date: 20050727
  Serious: No
  Sender: FDA-Public Use
  Company Number: USA040772138

PATIENT
  Age: 74 Year
  Sex: Female

DRUGS (2)
  1. FORTEO [Suspect]
     Indication: OSTEOPOROSIS
     Dates: start: 20040601
  2. TRAMADOL HCL [Concomitant]

REACTIONS (4)
  - BURNING SENSATION [None]
  - DERMATITIS EXFOLIATIVE [None]
  - DRY SKIN [None]
  - RASH [None]
